FAERS Safety Report 8468807-1 (Version None)
Quarter: 2012Q2

REPORT INFORMATION
  Report Type: 
  Country: None (occurrence: None)
  Receive Date: 20120619
  Receipt Date: 20120606
  Transmission Date: 20120825
  Serious: Yes (Hospitalization)
  Sender: FDA-Public Use
  Company Number: 2012AL000050

PATIENT
  Age: 82 Year
  Sex: Female
  Weight: 65.3 kg

DRUGS (21)
  1. ALBUTEROL [Concomitant]
  2. GARLIC [Concomitant]
  3. LOPRESSOR [Concomitant]
  4. SUPER B COMPLEX [Concomitant]
  5. VALACYCLOVIR [Concomitant]
  6. BEXAROTENE [Suspect]
     Dates: end: 20120507
  7. HYDROXYZINE HCL [Concomitant]
  8. CALCIUM + VITAMIN D [Concomitant]
  9. ASPIRIN [Concomitant]
  10. PRILOSEC [Concomitant]
  11. ZYRTEC [Concomitant]
  12. LASIX [Concomitant]
  13. PRALATREXATE (PRALATREXATE) [Suspect]
     Dosage: 23.7 MG;QW;IV
     Route: 042
     Dates: start: 20120302, end: 20120503
  14. ADVAIR DISKUS 100/50 [Concomitant]
  15. TRIAMCINALONE [Concomitant]
  16. VITAMIN E [Concomitant]
  17. ALBUTEROL [Concomitant]
  18. CELEXA [Concomitant]
  19. LOVAZA [Concomitant]
  20. ZINC SULFATE [Concomitant]
  21. BENADRYL /LIDOCAINE VISCOUS / MAALOX [Concomitant]

REACTIONS (9)
  - MITRAL VALVE INCOMPETENCE [None]
  - CARDIAC FAILURE CONGESTIVE [None]
  - MUCOSAL INFLAMMATION [None]
  - NEOPLASM PROGRESSION [None]
  - DIARRHOEA [None]
  - ACUTE PULMONARY OEDEMA [None]
  - PLEURAL EFFUSION [None]
  - CHRONIC OBSTRUCTIVE PULMONARY DISEASE [None]
  - MYCOSIS FUNGOIDES [None]
